FAERS Safety Report 9498178 (Version 1)
Quarter: 2013Q3

REPORT INFORMATION
  Report Type: Spontaneous
  Country: US (occurrence: US)
  Receive Date: 20130904
  Receipt Date: 20130904
  Transmission Date: 20140515
  Serious: No
  Sender: FDA-Public Use
  Company Number: US-TEVA-428008USA

PATIENT
  Sex: Male

DRUGS (1)
  1. ACTIQ [Suspect]
     Route: 048

REACTIONS (1)
  - Pain [Unknown]
